FAERS Safety Report 19272631 (Version 2)
Quarter: 2021Q2

REPORT INFORMATION
  Report Type: Spontaneous
  Country: US (occurrence: US)
  Receive Date: 20210519
  Receipt Date: 20210602
  Transmission Date: 20210717
  Serious: Yes (Life-Threatening, Hospitalization, Other)
  Sender: FDA-Public Use
  Company Number: US-35507-2021-06839

PATIENT
  Age: 15 Year
  Sex: Female

DRUGS (2)
  1. SERTRALINE HYDROCHLORIDE TABLETS USP, 100 MG [Suspect]
     Active Substance: SERTRALINE HYDROCHLORIDE
     Indication: DEPRESSION
  2. SERTRALINE HYDROCHLORIDE TABLETS USP, 100 MG [Suspect]
     Active Substance: SERTRALINE HYDROCHLORIDE
     Indication: ANXIETY
     Dosage: UNK UNK, QD, 100 DF
     Route: 048
     Dates: start: 20210420, end: 20210421

REACTIONS (14)
  - Dysphagia [Recovered/Resolved]
  - Chest pain [Recovered/Resolved]
  - Pain [Recovered/Resolved]
  - Liver function test abnormal [Unknown]
  - Rash [Recovered/Resolved]
  - Product substitution issue [Unknown]
  - Feeling abnormal [Recovered/Resolved]
  - Headache [Recovered/Resolved]
  - Fatigue [Recovered/Resolved]
  - Foaming at mouth [Recovered/Resolved]
  - Product dose omission issue [Unknown]
  - Anaphylactic reaction [Recovered/Resolved]
  - Productive cough [Recovered/Resolved]
  - Pancreatic enzymes increased [Unknown]

NARRATIVE: CASE EVENT DATE: 20210420
